FAERS Safety Report 17042041 (Version 1)
Quarter: 2019Q4

REPORT INFORMATION
  Report Type: Spontaneous
  Country: SE (occurrence: SE)
  Receive Date: 20191118
  Receipt Date: 20191118
  Transmission Date: 20200122
  Serious: Yes (Other)
  Sender: FDA-Public Use
  Company Number: SE-ACCORD-161531

PATIENT
  Age: 71 Year
  Sex: Male
  Weight: 97 kg

DRUGS (6)
  1. TROMBYL [Concomitant]
     Active Substance: ASPIRIN
     Dates: start: 2010
  2. HYDROCHLOROTHIAZIDE. [Concomitant]
     Active Substance: HYDROCHLOROTHIAZIDE
     Dates: start: 2016
  3. ALFUZOSIN [Concomitant]
     Active Substance: ALFUZOSIN
     Dates: start: 2017
  4. SIMVASTATIN. [Interacting]
     Active Substance: SIMVASTATIN
     Indication: LIPIDS INCREASED
     Dosage: SIMVASTATIN 40 MG
     Dates: start: 2010
  5. SELOKENZOC [Concomitant]
     Active Substance: METOPROLOL SUCCINATE
  6. AMLODIPINE [Suspect]
     Active Substance: AMLODIPINE BESYLATE
     Indication: HYPERTENSION
     Dates: start: 2010

REACTIONS (3)
  - Hypoaesthesia [Not Recovered/Not Resolved]
  - Drug interaction [Not Recovered/Not Resolved]
  - Polyneuropathy [Not Recovered/Not Resolved]

NARRATIVE: CASE EVENT DATE: 20170115
